FAERS Safety Report 9414628 (Version 1)
Quarter: 2013Q3

REPORT INFORMATION
  Report Type: Spontaneous
  Country: FR (occurrence: FR)
  Receive Date: 20130723
  Receipt Date: 20130723
  Transmission Date: 20140515
  Serious: Yes (Death)
  Sender: FDA-Public Use
  Company Number: FR-PFIZER INC-2013212549

PATIENT
  Age: 52 Year
  Sex: Male

DRUGS (3)
  1. XANAX [Suspect]
     Dosage: UNK
  2. ZESTRIL [Suspect]
     Dosage: UNK
  3. PRIMALAN [Suspect]
     Dosage: UNK

REACTIONS (1)
  - Accidental death [Fatal]
